FAERS Safety Report 24941613 (Version 1)
Quarter: 2025Q1

REPORT INFORMATION
  Report Type: Spontaneous
  Country: CA (occurrence: CA)
  Receive Date: 20250207
  Receipt Date: 20250207
  Transmission Date: 20250409
  Serious: Yes (Other)
  Sender: ACCORD
  Company Number: None

PATIENT
  Age: 50 Year
  Sex: Male

DRUGS (5)
  1. QUETIAPINE [Suspect]
     Active Substance: QUETIAPINE
     Indication: Depression
     Route: 065
  2. DULOXETINE [Suspect]
     Active Substance: DULOXETINE
     Indication: Depression
     Route: 065
  3. KETAMINE [Suspect]
     Active Substance: KETAMINE
     Indication: Depression
  4. VORTIOXETINE [Suspect]
     Active Substance: VORTIOXETINE
     Indication: Depression
     Route: 065
  5. ZOLPIDEM [Suspect]
     Active Substance: ZOLPIDEM TARTRATE
     Indication: Depression
     Route: 048

REACTIONS (6)
  - Myalgia [Unknown]
  - Dizziness [Unknown]
  - Headache [Unknown]
  - Drug ineffective [Unknown]
  - Fatigue [Unknown]
  - Withdrawal syndrome [Unknown]
